FAERS Safety Report 12999000 (Version 1)
Quarter: 2016Q4

REPORT INFORMATION
  Report Type: Spontaneous
  Country: FR (occurrence: FR)
  Receive Date: 20161205
  Receipt Date: 20161205
  Transmission Date: 20170207
  Serious: Yes (Hospitalization, Other)
  Sender: FDA-Public Use
  Company Number: FR-GLAXOSMITHKLINE-FR2016GSK177998

PATIENT
  Age: 48 Year
  Sex: Female

DRUGS (5)
  1. ISOPTIN [Suspect]
     Active Substance: VERAPAMIL HYDROCHLORIDE
     Indication: CLUSTER HEADACHE
     Dosage: UNK UNK, BID
     Route: 048
     Dates: start: 201608
  2. RIVOTRIL [Suspect]
     Active Substance: CLONAZEPAM
     Indication: CLUSTER HEADACHE
     Dosage: 10 DF, SINGLE
     Route: 048
     Dates: start: 20161001, end: 20161001
  3. LAROXYL [Concomitant]
     Active Substance: AMITRIPTYLINE
     Dosage: 25 MG, 1D
  4. IMIJECT [Suspect]
     Active Substance: SUMATRIPTAN SUCCINATE
     Indication: CLUSTER HEADACHE
     Dosage: 1 UNK, Z
     Route: 058
     Dates: start: 20161001, end: 20161001
  5. AVLOCARDYL [Concomitant]
     Active Substance: PROPRANOLOL HYDROCHLORIDE
     Dosage: 40 MG, BID

REACTIONS (1)
  - Cardiogenic shock [Recovered/Resolved]

NARRATIVE: CASE EVENT DATE: 20161001
